FAERS Safety Report 6341424-5 (Version None)
Quarter: 2009Q3

REPORT INFORMATION
  Report Type: 
  Country: None (occurrence: None)
  Receive Date: 20090904
  Receipt Date: 20090826
  Transmission Date: 20100115
  Serious: Yes (Other)
  Sender: FDA-Public Use
  Company Number: GB-ELI_LILLY_AND_COMPANY-GB200908005854

PATIENT
  Age: 40 Year
  Sex: Male

DRUGS (9)
  1. CYMBALTA [Suspect]
     Dosage: UNK, UNKNOWN
     Route: 065
  2. ABILIFY [Concomitant]
     Indication: SCHIZOAFFECTIVE DISORDER
     Dosage: 15 MG, DAILY (1/D)
     Route: 048
     Dates: start: 20081001
  3. MIRTAZAPINE [Concomitant]
     Dosage: UNK, UNKNOWN
     Route: 065
  4. QUETIAPINE [Concomitant]
     Dosage: UNK, UNKNOWN
     Route: 065
  5. RISPERIDONE [Concomitant]
     Dosage: UNK, UNKNOWN
     Route: 065
  6. VALPROATE SODIUM [Concomitant]
     Dosage: UNK, UNKNOWN
     Route: 065
  7. DRUG USED IN DIABETES [Concomitant]
     Indication: TYPE 2 DIABETES MELLITUS
     Dosage: UNK, UNKNOWN
     Route: 048
  8. EFFEXOR [Concomitant]
     Indication: DEPRESSION
     Dosage: 225 MG, DAILY (1/D)
     Route: 048
  9. LITHIUM [Concomitant]
     Dosage: 600 MG, DAILY (1/D)
     Route: 048

REACTIONS (3)
  - HYPOTHYROIDISM [None]
  - LIVER FUNCTION TEST ABNORMAL [None]
  - METABOLIC SYNDROME [None]
